FAERS Safety Report 6602676-7 (Version None)
Quarter: 2010Q1

REPORT INFORMATION
  Report Type: 
  Country: None (occurrence: None)
  Receive Date: 20100218
  Receipt Date: 20100205
  Transmission Date: 20100710
  Serious: Yes (Other)
  Sender: FDA-Public Use
  Company Number: JPI-P-009671

PATIENT
  Age: 59 Year
  Sex: Female

DRUGS (2)
  1. XYREM [Suspect]
     Indication: SLEEP DISORDER
     Dosage: (2.5 TO 3.5 GM TWICE NIGHTLY),ORAL;  8 GM (4 GM,2 IN 1 D),ORAL
     Route: 048
     Dates: start: 20050205
  2. XYREM [Suspect]
     Indication: SLEEP DISORDER
     Dosage: (2.5 TO 3.5 GM TWICE NIGHTLY),ORAL;  8 GM (4 GM,2 IN 1 D),ORAL
     Route: 048
     Dates: start: 20091230

REACTIONS (3)
  - HEAD AND NECK CANCER [None]
  - LYMPHATIC DISORDER [None]
  - MUSCLE SPASMS [None]
